FAERS Safety Report 20350728 (Version 1)
Quarter: 2022Q1

REPORT INFORMATION
  Report Type: Spontaneous
  Country: US (occurrence: None)
  Receive Date: 20220117
  Receipt Date: 20220117
  Transmission Date: 20220423
  Serious: Yes (Life-Threatening, Disabling, Other)
  Sender: FDA-Public Use
  Company Number: None

PATIENT
  Sex: 0

DRUGS (1)
  1. CLONAZEPAM [Suspect]
     Active Substance: CLONAZEPAM
     Indication: Anxiety

REACTIONS (5)
  - Brain injury [None]
  - Suicidal ideation [None]
  - Drug withdrawal syndrome [None]
  - Economic problem [None]
  - Disability [None]

NARRATIVE: CASE EVENT DATE: 20110101
